FAERS Safety Report 9212489 (Version 1)
Quarter: 2013Q2

REPORT INFORMATION
  Report Type: Spontaneous
  Country: US (occurrence: US)
  Receive Date: 20130404
  Receipt Date: 20130404
  Transmission Date: 20140414
  Serious: No
  Sender: FDA-Public Use
  Company Number: US-009507513-1304USA000679

PATIENT
  Sex: Female

DRUGS (1)
  1. NUVARING [Suspect]
     Dosage: 1 RING, EVERY 28 DAYS
     Route: 067
     Dates: start: 201206

REACTIONS (2)
  - Device breakage [Unknown]
  - No adverse event [Unknown]
